FAERS Safety Report 8780204 (Version 1)
Quarter: 2012Q4

REPORT INFORMATION
  Report Type: Spontaneous
  Country: US (occurrence: None)
  Receive Date: 20120904
  Receipt Date: 20120904
  Transmission Date: 20130627
  Serious: Yes (Other)
  Sender: FDA-Public Use
  Company Number: None

PATIENT
  Age: 51 Year
  Sex: Male
  Weight: 77.11 kg

DRUGS (3)
  1. CREST PRO HEALTH ORAL RINSE MULTI PROTECTION ALCOHOL FREE PROCTER AND GAMBLE [Suspect]
     Indication: DENTAL PLAQUE
     Dosage: 2 ml 2x per day po
     Route: 048
  2. CREST PRO HEALTH ORAL RINSE MULTI PROTECTION ALCOHOL FREE PROCTER AND GAMBLE [Suspect]
     Indication: GINGIVITIS
     Dosage: 2 ml 2x per day po
     Route: 048
  3. CREST PRO HEALTH ORAL RINSE MULTI PROTECTION ALCOHOL FREE PROCTER AND GAMBLE [Suspect]
     Indication: PROPHYLAXIS
     Dosage: 2 ml 2x per day po
     Route: 048

REACTIONS (1)
  - Tooth discolouration [None]
